FAERS Safety Report 9771478 (Version 2)
Quarter: 2013Q4

REPORT INFORMATION
  Report Type: Spontaneous
  Country: US (occurrence: US)
  Receive Date: 20131219
  Receipt Date: 20131219
  Transmission Date: 20140711
  Serious: Yes (Other)
  Sender: FDA-Public Use
  Company Number: US-ASTRAZENECA-2013SE74094

PATIENT
  Sex: Male

DRUGS (2)
  1. BRILINTA [Suspect]
     Indication: ARTERIAL STENT INSERTION
     Route: 048
  2. BRILINTA [Suspect]
     Indication: ARTERIAL STENT INSERTION
     Route: 048

REACTIONS (7)
  - Limb injury [Unknown]
  - Haemorrhage [Unknown]
  - Angina pectoris [Unknown]
  - Weight increased [Unknown]
  - Fluid retention [Unknown]
  - Dyspnoea [Unknown]
  - Drug dose omission [Unknown]
